FAERS Safety Report 14276680 (Version 1)
Quarter: 2017Q4

REPORT INFORMATION
  Report Type: Spontaneous
  Country: BE (occurrence: BE)
  Receive Date: 20171211
  Receipt Date: 20171211
  Transmission Date: 20180321
  Serious: Yes (Other)
  Sender: FDA-Public Use
  Company Number: BE-OTSUKA-J20104686

PATIENT
  Age: 37 Year
  Sex: Female
  Weight: 117 kg

DRUGS (1)
  1. ABILIFY [Suspect]
     Active Substance: ARIPIPRAZOLE
     Indication: SCHIZOPHRENIA
     Dosage: 10 MG, QD
     Route: 048

REACTIONS (3)
  - Pregnancy on contraceptive [Unknown]
  - Gestational diabetes [Unknown]
  - Normal newborn [Unknown]

NARRATIVE: CASE EVENT DATE: 20090121
